FAERS Safety Report 7545439-0 (Version None)
Quarter: 2011Q2

REPORT INFORMATION
  Report Type: 
  Country: None (occurrence: None)
  Receive Date: 20110614
  Receipt Date: 20110531
  Transmission Date: 20111010
  Serious: Yes (Hospitalization, Other)
  Sender: FDA-Public Use
  Company Number: US-BAYER-201039479NA

PATIENT
  Age: 21 Year
  Sex: Female
  Weight: 56.689 kg

DRUGS (8)
  1. YASMIN [Suspect]
     Dosage: UNK
  2. YAZ [Suspect]
     Indication: PREMENSTRUAL SYNDROME
  3. TOPAMAX [Concomitant]
     Indication: MIGRAINE
  4. AMITIZA [Concomitant]
     Indication: CHANGE OF BOWEL HABIT
  5. YASMIN [Suspect]
     Indication: PREMENSTRUAL SYNDROME
     Dosage: UNK
     Dates: start: 20041103, end: 20091119
  6. YASMIN [Suspect]
     Indication: ORAL CONTRACEPTION
     Dosage: UNK UNK, UNK
     Route: 048
     Dates: start: 20041101
  7. MULTI-VITAMIN [Concomitant]
     Dosage: UNK UNK, QD
     Route: 048
  8. YAZ [Suspect]
     Indication: ORAL CONTRACEPTION
     Dosage: UNK
     Dates: start: 20041103, end: 20091119

REACTIONS (4)
  - CHOLELITHIASIS [None]
  - CHOLECYSTITIS CHRONIC [None]
  - ABDOMINAL PAIN [None]
  - CHOLESTEROSIS [None]
